FAERS Safety Report 4860160-5 (Version None)
Quarter: 2005Q4

REPORT INFORMATION
  Report Type: 
  Country: None (occurrence: None)
  Receive Date: 20051215
  Receipt Date: 20051129
  Transmission Date: 20060501
  Serious: Yes (Death)
  Sender: FDA-Public Use
  Company Number: 217557

PATIENT
  Age: 66 Year
  Sex: Male
  Weight: 86.2 kg

DRUGS (5)
  1. AVASTIN [Suspect]
     Indication: COLORECTAL CANCER
     Dosage: 5 MG/KG, Q2W, INTRAVENOUS
     Route: 042
     Dates: start: 20040409, end: 20050107
  2. PCA (ANALGESIC NOS) [Suspect]
     Dates: start: 20050801
  3. LEVAQUIN [Concomitant]
  4. UNASYN (AMPICILLIN, SULBACTAM SODIUM) [Concomitant]
  5. AUGMENTIN '250' [Concomitant]

REACTIONS (10)
  - ATRIAL FIBRILLATION [None]
  - DECREASED APPETITE [None]
  - DYSPHAGIA [None]
  - MALNUTRITION [None]
  - MEDIASTINITIS [None]
  - METASTASES TO RETROPERITONEUM [None]
  - OESOPHAGEAL PERFORATION [None]
  - OESOPHAGEAL STENOSIS [None]
  - PERFORMANCE STATUS DECREASED [None]
  - PNEUMONIA [None]
